FAERS Safety Report 25475826 (Version 1)
Quarter: 2025Q2

REPORT INFORMATION
  Report Type: Report from Study
  Country: US (occurrence: US)
  Receive Date: 20250624
  Receipt Date: 20250624
  Transmission Date: 20250717
  Serious: Yes (Other)
  Sender: ABBVIE
  Company Number: US-ABBVIE-6339533

PATIENT
  Age: 83 Year
  Sex: Male

DRUGS (4)
  1. CREON [Suspect]
     Active Substance: PANCRELIPASE AMYLASE\PANCRELIPASE LIPASE\PANCRELIPASE PROTEASE
     Indication: Dyspepsia
     Route: 048
     Dates: start: 20250210
  2. CREON [Suspect]
     Active Substance: PANCRELIPASE AMYLASE\PANCRELIPASE LIPASE\PANCRELIPASE PROTEASE
     Indication: Dyspepsia
     Route: 048
     Dates: start: 20250217
  3. CAPECITABINE [Concomitant]
     Active Substance: CAPECITABINE
     Indication: Pancreatic neoplasm
     Dosage: 1 TABLET IN THE MORNING AND 1 TABLET  IN THE EVENING?FORM STRENGTH UNITS: 500 MILLIGRAM
     Route: 048
     Dates: start: 202407
  4. IMODIUM [Concomitant]
     Active Substance: LOPERAMIDE HYDROCHLORIDE
     Indication: Diarrhoea

REACTIONS (2)
  - Neoplasm progression [Unknown]
  - Flatulence [Not Recovered/Not Resolved]

NARRATIVE: CASE EVENT DATE: 20250101
